FAERS Safety Report 9535930 (Version 1)
Quarter: 2013Q2

REPORT INFORMATION
  Report Type: Spontaneous
  Country: US (occurrence: None)
  Receive Date: 20130506
  Receipt Date: 20130506
  Transmission Date: 20140414
  Serious: Yes (Other)
  Sender: FDA-Public Use
  Company Number: SYM-2013-03255

PATIENT
  Age: 16 Year
  Sex: Male

DRUGS (3)
  1. TIMOLOL GFS (TIMOLOL) (0.5 PERCENT) (TIMOLOL) [Suspect]
     Indication: INTRAOCULAR PRESSURE INCREASED
     Dosage: ONE DROP DAILY
     Dates: start: 201212
  2. TRAVATAN (TRAVOPROST) (TRAVOPROST) [Concomitant]
  3. TRUSOPT (DORZOLAMIDE HYDROCHLORIDE) (DORZOLAMIDE HYDROCHLORIDE) [Concomitant]

REACTIONS (1)
  - Intraocular pressure increased [None]
